FAERS Safety Report 19717775 (Version 3)
Quarter: 2021Q4

REPORT INFORMATION
  Report Type: Spontaneous
  Country: FR (occurrence: FR)
  Receive Date: 20210818
  Receipt Date: 20211130
  Transmission Date: 20220303
  Serious: Yes (Hospitalization, Other)
  Sender: FDA-Public Use
  Company Number: None

PATIENT

DRUGS (2)
  1. SUBUTEX [Suspect]
     Active Substance: BUPRENORPHINE HYDROCHLORIDE
     Indication: Product used for unknown indication
     Dosage: UNK
     Route: 065
     Dates: start: 2018
  2. SUBUTEX [Suspect]
     Active Substance: BUPRENORPHINE HYDROCHLORIDE
     Dosage: UNK
     Route: 042

REACTIONS (6)
  - Myocardial infarction [Recovering/Resolving]
  - Deep vein thrombosis [Recovering/Resolving]
  - Intervertebral discitis [Recovering/Resolving]
  - Product use issue [Unknown]
  - Endocarditis [Recovering/Resolving]
  - Drug abuser [Unknown]

NARRATIVE: CASE EVENT DATE: 20210315
